FAERS Safety Report 7069211-3 (Version None)
Quarter: 2010Q4

REPORT INFORMATION
  Report Type: 
  Country: None (occurrence: None)
  Receive Date: 20101028
  Receipt Date: 20101019
  Transmission Date: 20110411
  Serious: Yes (Other)
  Sender: FDA-Public Use
  Company Number: B0681366A

PATIENT
  Sex: Female

DRUGS (1)
  1. FLUTIDE DISKUS [Suspect]
     Indication: ASTHMA
     Route: 055

REACTIONS (1)
  - HEPATIC STEATOSIS [None]
